FAERS Safety Report 20755150 (Version 1)
Quarter: 2022Q2

REPORT INFORMATION
  Report Type: Spontaneous
  Country: JP (occurrence: JP)
  Receive Date: 20220427
  Receipt Date: 20220427
  Transmission Date: 20220721
  Serious: Yes (Other)
  Sender: FDA-Public Use
  Company Number: JP-Clinigen Group PLC/ Clinigen Healthcare Ltd-JP-CLGN-21-00187

PATIENT

DRUGS (1)
  1. FOSCAVIR [Suspect]
     Active Substance: FOSCARNET SODIUM
     Indication: Product used for unknown indication

REACTIONS (3)
  - Cardiac dysfunction [Unknown]
  - Renal impairment [Unknown]
  - Blood calcium increased [Unknown]
